FAERS Safety Report 10010366 (Version 3)
Quarter: 2014Q2

REPORT INFORMATION
  Report Type: Spontaneous
  Country: US (occurrence: US)
  Receive Date: 20140314
  Receipt Date: 20140418
  Transmission Date: 20141212
  Serious: Yes (Hospitalization)
  Sender: FDA-Public Use
  Company Number: US-BIOGENIDEC-2014BI022538

PATIENT
  Age: 30 Year
  Sex: Male

DRUGS (8)
  1. TYSABRI [Suspect]
     Indication: CROHN^S DISEASE
     Route: 042
     Dates: start: 20110725, end: 20121207
  2. TYSABRI [Suspect]
     Indication: CROHN^S DISEASE
     Route: 042
  3. UCERIS [Concomitant]
  4. OXYCODONE [Concomitant]
  5. SIMBRINZA [Concomitant]
  6. ATROPINE [Concomitant]
  7. MAXITROL [Concomitant]
  8. SYSTANE [Concomitant]

REACTIONS (1)
  - Iris melanoma [Not Recovered/Not Resolved]
